FAERS Safety Report 18570626 (Version 2)
Quarter: 2020Q4

REPORT INFORMATION
  Report Type: Report from Study
  Country: DE (occurrence: DE)
  Receive Date: 20201202
  Receipt Date: 20201214
  Transmission Date: 20210114
  Serious: Yes (Hospitalization, Other)
  Sender: FDA-Public Use
  Company Number: DE-TAKEDA-2020TUS052731

PATIENT

DRUGS (3)
  1. ELIQUIS [Concomitant]
     Active Substance: APIXABAN
     Indication: AMPUTATION
     Dosage: 5 MILLIGRAM, BID
     Route: 058
  2. HUMAN PROTEIN C [Suspect]
     Active Substance: PROTEIN C
     Indication: PROTEIN C DEFICIENCY
     Dosage: 4000 MILLIGRAM, 2/WEEK
     Route: 042
  3. HUMAN PROTEIN C [Suspect]
     Active Substance: PROTEIN C
     Dosage: 4000 MILLIGRAM, 2/WEEK
     Route: 042
     Dates: start: 20201120

REACTIONS (1)
  - Central venous catheterisation [Recovered/Resolved]

NARRATIVE: CASE EVENT DATE: 20201111
